FAERS Safety Report 16125728 (Version 2)
Quarter: 2019Q2

REPORT INFORMATION
  Report Type: Spontaneous
  Country: IT (occurrence: IT)
  Receive Date: 20190328
  Receipt Date: 20190408
  Transmission Date: 20190711
  Serious: Yes (Hospitalization)
  Sender: FDA-Public Use
  Company Number: IT-AUROBINDO-AUR-APL-2019-015680

PATIENT

DRUGS (10)
  1. DEURSIL [Suspect]
     Active Substance: URSODIOL
     Indication: PRODUCT USED FOR UNKNOWN INDICATION
     Dosage: 5 DOSAGE FORM IN TOTAL
     Route: 048
     Dates: start: 20190304, end: 20190304
  2. DEFLAN [Suspect]
     Active Substance: DEFLAZACORT
     Indication: PRODUCT USED FOR UNKNOWN INDICATION
     Dosage: 10 DOSAGE FORM IN TOTAL
     Route: 048
     Dates: start: 20190304, end: 20190304
  3. DELTACORTENE [Suspect]
     Active Substance: PREDNISONE
     Indication: PRODUCT USED FOR UNKNOWN INDICATION
     Dosage: 10 DOSAGE FORM IN TOTAL
     Route: 048
     Dates: start: 20190304, end: 20190304
  4. AUGMENTIN [Suspect]
     Active Substance: AMOXICILLIN\CLAVULANATE POTASSIUM
     Indication: PRODUCT USED FOR UNKNOWN INDICATION
     Dosage: 12 DOSAGE FORM IN TOTAL
     Route: 048
     Dates: start: 20190304, end: 20190304
  5. PARACODINA [DIHYDROCODEINE THIOCYANATE] [Suspect]
     Active Substance: DIHYDROCODEINE THIOCYANATE
     Indication: PRODUCT USED FOR UNKNOWN INDICATION
     Dosage: 1 DOSAGE FORM IN TOTAL
     Route: 048
     Dates: start: 20190304, end: 20190304
  6. BRUFEN [Suspect]
     Active Substance: IBUPROFEN
     Indication: PRODUCT USED FOR UNKNOWN INDICATION
     Dosage: 30 DOSAGE FORM IN TOTAL
     Route: 048
     Dates: start: 20190304, end: 20190304
  7. SPORANOX [Suspect]
     Active Substance: ITRACONAZOLE
     Indication: PRODUCT USED FOR UNKNOWN INDICATION
     Dosage: 10 DOSAGE FORM IN TOTAL
     Route: 048
     Dates: start: 20190304, end: 20190304
  8. PANTOPRAZOLE [Suspect]
     Active Substance: PANTOPRAZOLE
     Indication: PRODUCT USED FOR UNKNOWN INDICATION
     Dosage: 140 DOSAGE FORM IN TOTAL
     Route: 048
     Dates: start: 20190304, end: 20190304
  9. NITROFURANTOIN MACROCRYSTALS [Suspect]
     Active Substance: NITROFURANTOIN
     Indication: PRODUCT USED FOR UNKNOWN INDICATION
     Dosage: 20 DOSAGE FORM, AS NECESSARY
     Route: 048
     Dates: start: 20190304, end: 20190304
  10. BREXIN (PIROXICAM BETADEX) [Suspect]
     Active Substance: PIROXICAM BETADEX
     Indication: PRODUCT USED FOR UNKNOWN INDICATION
     Dosage: 12 DOSAGE FORM IN TOTAL
     Route: 048
     Dates: start: 20190304, end: 20190304

REACTIONS (3)
  - Aphasia [Recovered/Resolved]
  - Sopor [Recovered/Resolved]
  - Drug abuse [Recovered/Resolved]

NARRATIVE: CASE EVENT DATE: 20190304
